FAERS Safety Report 8547631-5 (Version None)
Quarter: 2012Q3

REPORT INFORMATION
  Report Type: 
  Country: None (occurrence: None)
  Receive Date: 20120727
  Receipt Date: 20120418
  Transmission Date: 20120928
  Serious: Yes (Hospitalization)
  Sender: FDA-Public Use
  Company Number: US-ASTRAZENECA-2012SE25671

PATIENT
  Age: 74 Year
  Sex: Female

DRUGS (2)
  1. SEROQUEL XR [Suspect]
     Indication: PSYCHOTIC DISORDER
     Route: 048
  2. SEROQUEL XR [Suspect]
     Dosage: 300 MG DAILY (200 MG IN THE MORNING AND 100 MG AT NIGHT)
     Route: 048

REACTIONS (6)
  - PSYCHOTIC DISORDER [None]
  - OFF LABEL USE [None]
  - INCREASED APPETITE [None]
  - BLOOD CHOLESTEROL INCREASED [None]
  - DRUG INEFFECTIVE [None]
  - WEIGHT INCREASED [None]
